FAERS Safety Report 21420543 (Version 1)
Quarter: 2022Q4

REPORT INFORMATION
  Report Type: Other
  Country: CN (occurrence: CN)
  Receive Date: 20221007
  Receipt Date: 20221007
  Transmission Date: 20230113
  Serious: Yes (Hospitalization)
  Sender: FDA-Public Use
  Company Number: None

PATIENT

DRUGS (2)
  1. LEUKERAN [Suspect]
     Active Substance: CHLORAMBUCIL
     Indication: Chemotherapy
     Dosage: 8 MG, QD
     Route: 048
     Dates: start: 20220308, end: 20220921
  2. SINTILIMAB [Suspect]
     Active Substance: SINTILIMAB
     Indication: Immunochemotherapy
     Dosage: 200 MG, QD
     Route: 041
     Dates: start: 20220831, end: 20220831

REACTIONS (1)
  - Rash pruritic [Recovering/Resolving]

NARRATIVE: CASE EVENT DATE: 20220921
